FAERS Safety Report 11533793 (Version 1)
Quarter: 2015Q3

REPORT INFORMATION
  Report Type: Spontaneous
  Country: CN (occurrence: CN)
  Receive Date: 20150922
  Receipt Date: 20150922
  Transmission Date: 20151125
  Serious: No
  Sender: FDA-Public Use
  Company Number: CN-GLENMARK PHARMACEUTICALS INC, USA.-2014GMK012308

PATIENT
  Age: 42 Year
  Sex: Female

DRUGS (1)
  1. VERAPAMIL [Suspect]
     Active Substance: VERAPAMIL HYDROCHLORIDE
     Indication: LONG QT SYNDROME
     Dosage: 240 MG, QD
     Route: 048

REACTIONS (1)
  - Product use issue [Unknown]
